FAERS Safety Report 4739251-5 (Version None)
Quarter: 2005Q3

REPORT INFORMATION
  Report Type: 
  Country: None (occurrence: None)
  Receive Date: 20050810
  Receipt Date: 20050104
  Transmission Date: 20060218
  Serious: No
  Sender: FDA-Public Use
  Company Number: 2004/05291

PATIENT
  Sex: Male

DRUGS (1)
  1. PAXIL [Suspect]
     Indication: DRUG USE FOR UNKNOWN INDICATION
     Route: 048
     Dates: start: 20040101

REACTIONS (1)
  - EJACULATION FAILURE [None]
